FAERS Safety Report 5366862-9 (Version None)
Quarter: 2007Q2

REPORT INFORMATION
  Report Type: 
  Country: None (occurrence: None)
  Receive Date: 20070622
  Receipt Date: 20061017
  Transmission Date: 20071010
  Serious: No
  Sender: FDA-Public Use
  Company Number: US-ASTRAZENECA-2006UW20026

PATIENT
  Age: 48 Year
  Sex: Female
  Weight: 47.6 kg

DRUGS (4)
  1. RHINOCORT [Suspect]
     Indication: RHINITIS
     Route: 045
     Dates: start: 20020101
  2. RHINOCORT [Suspect]
     Indication: NASAL CONGESTION
     Route: 045
     Dates: start: 20020101
  3. RHINOCORT [Suspect]
     Indication: SINUS HEADACHE
     Route: 045
     Dates: start: 20020101
  4. THYROID TAB [Concomitant]

REACTIONS (3)
  - INSOMNIA [None]
  - OVERDOSE [None]
  - POOR QUALITY SLEEP [None]
